FAERS Safety Report 13447431 (Version 5)
Quarter: 2017Q2

REPORT INFORMATION
  Report Type: Spontaneous
  Country: US (occurrence: US)
  Receive Date: 20170417
  Receipt Date: 20170608
  Transmission Date: 20170830
  Serious: Yes (Other)
  Sender: FDA-Public Use
  Company Number: US-PFIZER INC-2017165509

PATIENT
  Age: 68 Year
  Sex: Female
  Weight: 69 kg

DRUGS (1)
  1. NORVASC [Suspect]
     Active Substance: AMLODIPINE BESYLATE
     Indication: HYPERTENSION
     Dosage: 10 MG, UNK
     Route: 048
     Dates: start: 2016

REACTIONS (5)
  - Brain oedema [Unknown]
  - Suspected counterfeit product [Unknown]
  - Epistaxis [Unknown]
  - Malaise [Unknown]
  - Drug ineffective [Unknown]
